FAERS Safety Report 12750488 (Version 1)
Quarter: 2016Q3

REPORT INFORMATION
  Report Type: Report from Study
  Country: US (occurrence: US)
  Receive Date: 20160916
  Receipt Date: 20160916
  Transmission Date: 20161109
  Serious: Yes (Other)
  Sender: FDA-Public Use
  Company Number: US-MALLINCKRODT-T201604274

PATIENT
  Age: 72 Year
  Sex: Female
  Weight: 90 kg

DRUGS (2)
  1. REPOSITORY CORTICOTROPIN INJECTION [Suspect]
     Active Substance: CORTICOTROPIN
     Dosage: UNK
  2. REPOSITORY CORTICOTROPIN INJECTION [Suspect]
     Active Substance: CORTICOTROPIN
     Indication: MULTIPLE SCLEROSIS
     Dosage: 80 UNITS, DAILY FOR 7 DAYS
     Route: 058
     Dates: start: 20160831, end: 20160905

REACTIONS (18)
  - Urine output decreased [Unknown]
  - Swelling face [Unknown]
  - Tremor [Unknown]
  - Hypoaesthesia oral [Unknown]
  - Blood pressure increased [Unknown]
  - Product physical consistency issue [Recovered/Resolved]
  - Paraesthesia oral [Unknown]
  - Visual impairment [Unknown]
  - Eyelid oedema [Not Recovered/Not Resolved]
  - Retching [Unknown]
  - Dyspnoea [Unknown]
  - Drug dose omission [Recovered/Resolved]
  - Headache [Unknown]
  - Weight increased [Unknown]
  - Nausea [Not Recovered/Not Resolved]
  - Pruritus generalised [Unknown]
  - Insomnia [Unknown]
  - Rash [Not Recovered/Not Resolved]

NARRATIVE: CASE EVENT DATE: 2016
